FAERS Safety Report 23860873 (Version 2)
Quarter: 2024Q2

REPORT INFORMATION
  Report Type: Other
  Country: US (occurrence: None)
  Receive Date: 20240516
  Receipt Date: 20240520
  Transmission Date: 20240716
  Serious: Yes (Other)
  Sender: FDA-Public Use
  Company Number: US-ROCHE-3550322

PATIENT

DRUGS (1)
  1. XOLAIR [Suspect]
     Active Substance: OMALIZUMAB
     Indication: Angioedema
     Route: 065

REACTIONS (8)
  - Off label use [Unknown]
  - Swelling [Unknown]
  - Headache [Unknown]
  - Pain in jaw [Unknown]
  - Influenza [Unknown]
  - C-reactive protein increased [Unknown]
  - Parotid gland enlargement [Unknown]
  - Angioedema [Unknown]
